FAERS Safety Report 18600212 (Version 1)
Quarter: 2020Q4

REPORT INFORMATION
  Report Type: Spontaneous
  Country: US (occurrence: US)
  Receive Date: 20201210
  Receipt Date: 20201210
  Transmission Date: 20210114
  Serious: No
  Sender: FDA-Public Use
  Company Number: None

PATIENT
  Sex: Male
  Weight: 87.5 kg

DRUGS (3)
  1. CAPECITABINE. [Concomitant]
     Active Substance: CAPECITABINE
  2. DULOXETINE HYDROCHLORIDE. [Suspect]
     Active Substance: DULOXETINE HYDROCHLORIDE
  3. OXALIPLATIN. [Concomitant]
     Active Substance: OXALIPLATIN

REACTIONS (7)
  - Fatigue [None]
  - Weight decreased [None]
  - Decreased appetite [None]
  - Abdominal pain [None]
  - White blood cell count abnormal [None]
  - Diarrhoea [None]
  - Hypophagia [None]

NARRATIVE: CASE EVENT DATE: 20201021
